FAERS Safety Report 18606468 (Version 1)
Quarter: 2020Q4

REPORT INFORMATION
  Report Type: Spontaneous
  Country: US (occurrence: US)
  Receive Date: 20201211
  Receipt Date: 20201211
  Transmission Date: 20210114
  Serious: Yes (Hospitalization, Other)
  Sender: FDA-Public Use
  Company Number: US-ASTRAZENECA-2020SF64444

PATIENT
  Sex: Male
  Weight: 126.1 kg

DRUGS (1)
  1. SEROQUEL XR [Suspect]
     Active Substance: QUETIAPINE FUMARATE
     Indication: SCHIZOPHRENIA
     Dosage: 200 MG TID TO 600 MG TID ,OVER A PERIOD OF 5 YEARS
     Route: 048
     Dates: start: 2001

REACTIONS (4)
  - Anger [Unknown]
  - Cardiac disorder [Unknown]
  - Palpitations [Recovered/Resolved]
  - Weight increased [Unknown]
